FAERS Safety Report 4263728-2 (Version None)
Quarter: 2004Q1

REPORT INFORMATION
  Report Type: 
  Country: None (occurrence: None)
  Receive Date: 20040102
  Receipt Date: 20031219
  Transmission Date: 20041129
  Serious: No
  Sender: FDA-Public Use
  Company Number: USA030947745

PATIENT
  Sex: Male

DRUGS (3)
  1. ZYPREXA [Suspect]
     Indication: ABNORMAL BEHAVIOUR
     Dosage: 10 MG/DAY
     Dates: start: 20030101
  2. ZYPREXA [Suspect]
     Indication: MENTAL DISORDER
     Dosage: 10 MG/DAY
     Dates: start: 20030101
  3. DEPAKOTE (VALPORATE SEMISODIUM) [Concomitant]

REACTIONS (2)
  - PLATELET COUNT DECREASED [None]
  - WHITE BLOOD CELL COUNT DECREASED [None]
